FAERS Safety Report 26172296 (Version 1)
Quarter: 2025Q4

REPORT INFORMATION
  Report Type: Spontaneous
  Country: US (occurrence: US)
  Receive Date: 20251218
  Receipt Date: 20251218
  Transmission Date: 20260117
  Serious: Yes (Other)
  Sender: EMCURE PHARMACEUTICALS LTD
  Company Number: US-AVET LIFESCIENCES LTD-2025-AVET-000359

PATIENT
  Age: 61 Year
  Sex: Male

DRUGS (1)
  1. DOXYCYCLINE [Suspect]
     Active Substance: DOXYCYCLINE
     Indication: Arthropod bite
     Dosage: UNK, 5 DOSES
     Route: 065

REACTIONS (4)
  - Lyme disease [Recovered/Resolved]
  - Keratic precipitates [Recovered/Resolved]
  - Headache [Unknown]
  - Drug intolerance [Unknown]
